FAERS Safety Report 16116628 (Version 1)
Quarter: 2019Q1

REPORT INFORMATION
  Report Type: Spontaneous
  Country: SE (occurrence: SE)
  Receive Date: 20190326
  Receipt Date: 20190326
  Transmission Date: 20190418
  Serious: Yes (Hospitalization)
  Sender: FDA-Public Use
  Company Number: SE-ACCORD-115785

PATIENT
  Age: 70 Year
  Sex: Male

DRUGS (2)
  1. RAMIPRIL. [Suspect]
     Active Substance: RAMIPRIL
     Indication: PRODUCT USED FOR UNKNOWN INDICATION
     Route: 065
     Dates: start: 201406
  2. METOPROLOL. [Suspect]
     Active Substance: METOPROLOL
     Indication: PRODUCT USED FOR UNKNOWN INDICATION
     Dosage: METOPROLOL TARTRATE ALSO TAKEN AT 100 MG DOSE
     Route: 065
     Dates: start: 201406

REACTIONS (2)
  - Chronotropic incompetence [Unknown]
  - Cough [Unknown]

NARRATIVE: CASE EVENT DATE: 2014
